FAERS Safety Report 4745245-6 (Version None)
Quarter: 2005Q3

REPORT INFORMATION
  Report Type: 
  Country: None (occurrence: None)
  Receive Date: 20050812
  Receipt Date: 20050803
  Transmission Date: 20060218
  Serious: Yes (Disabling, Other)
  Sender: FDA-Public Use
  Company Number: 2005-04-1534

PATIENT
  Sex: Male

DRUGS (2)
  1. PEG-INTRON [Suspect]
     Indication: NON-HODGKIN'S LYMPHOMA STAGE III
  2. ROFERON-A [Suspect]
     Indication: NON-HODGKIN'S LYMPHOMA STAGE III

REACTIONS (10)
  - AGEUSIA [None]
  - ANOSMIA [None]
  - AUTOIMMUNE DISORDER [None]
  - FATIGUE [None]
  - HYPOTHYROIDISM [None]
  - IMPAIRED WORK ABILITY [None]
  - INFLUENZA LIKE ILLNESS [None]
  - LICHENOID KERATOSIS [None]
  - RASH [None]
  - THYROID ATROPHY [None]
